FAERS Safety Report 18495633 (Version 2)
Quarter: 2020Q4

REPORT INFORMATION
  Report Type: Spontaneous
  Country: CH (occurrence: CH)
  Receive Date: 20201112
  Receipt Date: 20201116
  Transmission Date: 20210114
  Serious: Yes (Life-Threatening, Hospitalization)
  Sender: FDA-Public Use
  Company Number: CH-PFIZER INC-2020442727

PATIENT
  Age: 87 Year
  Sex: Female

DRUGS (7)
  1. SIMCORA [Concomitant]
     Active Substance: SIMVASTATIN
     Indication: HYPERLIPIDAEMIA
     Dosage: 20 MG
     Route: 048
  2. FLAGYL [Suspect]
     Active Substance: METRONIDAZOLE\METRONIDAZOLE HYDROCHLORIDE
     Indication: SMALL INTESTINAL PERFORATION
  3. LANSOPRAZOLE. [Concomitant]
     Active Substance: LANSOPRAZOLE
     Dosage: 30 MG
     Route: 048
  4. CIPROXIN [CIPROFLOXACIN] [Suspect]
     Active Substance: CIPROFLOXACIN
     Indication: DUODENAL PERFORATION
     Dosage: UNK
     Route: 065
  5. FLAGYL [Suspect]
     Active Substance: METRONIDAZOLE\METRONIDAZOLE HYDROCHLORIDE
     Indication: DUODENAL PERFORATION
     Dosage: UNK
     Route: 048
     Dates: start: 20090115
  6. CIPROXIN [CIPROFLOXACIN] [Suspect]
     Active Substance: CIPROFLOXACIN
     Indication: SMALL INTESTINAL PERFORATION
     Dosage: 500 MG, 2X/DAY
     Dates: start: 20090115, end: 20090130
  7. CANDESARTAN CILEXETIL. [Concomitant]
     Active Substance: CANDESARTAN CILEXETIL
     Indication: HYPERTENSION
     Dosage: 16 MG
     Route: 048

REACTIONS (4)
  - Cardiovascular disorder [Not Recovered/Not Resolved]
  - Electrocardiogram QT interval abnormal [Not Recovered/Not Resolved]
  - Electrocardiogram QT prolonged [Not Recovered/Not Resolved]
  - Torsade de pointes [Not Recovered/Not Resolved]

NARRATIVE: CASE EVENT DATE: 20090130
